FAERS Safety Report 15863821 (Version 1)
Quarter: 2019Q1

REPORT INFORMATION
  Report Type: Spontaneous
  Country: US (occurrence: US)
  Receive Date: 20190124
  Receipt Date: 20190124
  Transmission Date: 20190417
  Serious: No
  Sender: FDA-Public Use
  Company Number: US-GLAXOSMITHKLINE-US2019GSK007408

PATIENT
  Sex: Female

DRUGS (3)
  1. VILAZODONE HYDROCHLORIDE TABLET [Suspect]
     Active Substance: VILAZODONE HYDROCHLORIDE
     Indication: PRODUCT USED FOR UNKNOWN INDICATION
     Dosage: 40 MG, QHS
     Route: 048
  2. WELLBUTRIN SR [Suspect]
     Active Substance: BUPROPION HYDROCHLORIDE
     Indication: PRODUCT USED FOR UNKNOWN INDICATION
     Dosage: 150 MG, QAM
  3. VILAZODONE HYDROCHLORIDE TABLET [Suspect]
     Active Substance: VILAZODONE HYDROCHLORIDE
     Dosage: 40 MG, QHS
     Route: 048

REACTIONS (6)
  - Neck pain [Unknown]
  - Abdominal discomfort [Unknown]
  - Product dose omission [Unknown]
  - Headache [Unknown]
  - Back pain [Unknown]
  - Pain [Unknown]
